FAERS Safety Report 14831288 (Version 1)
Quarter: 2018Q2

REPORT INFORMATION
  Report Type: Spontaneous
  Country: RU (occurrence: RU)
  Receive Date: 20180501
  Receipt Date: 20180501
  Transmission Date: 20180711
  Serious: Yes (Death)
  Sender: FDA-Public Use
  Company Number: RU-ACCORD-066379

PATIENT
  Age: 65 Year
  Sex: Male
  Weight: 63 kg

DRUGS (4)
  1. PRESTARIUM A [Concomitant]
     Active Substance: PERINDOPRIL ARGININE
     Dates: start: 20150310
  2. DEXAMETHASONE. [Concomitant]
     Active Substance: DEXAMETHASONE
     Dates: start: 20180313, end: 20180315
  3. TOPOTECAN/TOPOTECAN HYDROCHLORIDE. [Suspect]
     Active Substance: TOPOTECAN HYDROCHLORIDE
     Indication: SMALL CELL LUNG CANCER
     Dosage: 2.58 MG TOTAL DAILY DOSE
     Route: 042
     Dates: start: 20180221, end: 20180318
  4. TOTHEMA [Concomitant]
     Active Substance: COPPER GLUCONATE\FERROUS GLUCONATE\MANGANESE GLUCONATE
     Dates: start: 20180306

REACTIONS (1)
  - Acute coronary syndrome [Fatal]

NARRATIVE: CASE EVENT DATE: 20180401
